FAERS Safety Report 8112339-7 (Version None)
Quarter: 2012Q1

REPORT INFORMATION
  Report Type: 
  Country: None (occurrence: None)
  Receive Date: 20120203
  Receipt Date: 20111031
  Transmission Date: 20120608
  Serious: No
  Sender: FDA-Public Use
  Company Number: US-ASTRAZENECA-2011SE65814

PATIENT
  Age: 68 Year
  Sex: Female

DRUGS (5)
  1. LISINOPRIL [Concomitant]
  2. SYNTHROID [Concomitant]
  3. VANDETANIB [Suspect]
     Indication: THYROID CANCER
     Route: 048
  4. ATENOLOL [Concomitant]
  5. CYMBALTA [Concomitant]

REACTIONS (4)
  - DRY THROAT [None]
  - BLOOD PRESSURE INCREASED [None]
  - LIP PAIN [None]
  - RASH [None]
